FAERS Safety Report 23236623 (Version 2)
Quarter: 2024Q2

REPORT INFORMATION
  Report Type: Report from Study
  Country: US (occurrence: US)
  Receive Date: 20231128
  Receipt Date: 20240531
  Transmission Date: 20240716
  Serious: No
  Sender: FDA-Public Use
  Company Number: US-002147023-NVSC2023US249217

PATIENT
  Sex: Male

DRUGS (1)
  1. LEQVIO [Suspect]
     Active Substance: INCLISIRAN SODIUM
     Indication: Product used for unknown indication
     Dosage: UNK
     Route: 058
     Dates: start: 20230808

REACTIONS (4)
  - Blood cholesterol increased [Unknown]
  - Limb discomfort [Unknown]
  - Muscular weakness [Unknown]
  - Drug ineffective [Unknown]
